FAERS Safety Report 9964747 (Version 1)
Quarter: 2014Q1

REPORT INFORMATION
  Report Type: Spontaneous
  Country: US (occurrence: US)
  Receive Date: 20140305
  Receipt Date: 20140305
  Transmission Date: 20141002
  Serious: No
  Sender: FDA-Public Use
  Company Number: US-AMGEN-USASP2014000538

PATIENT
  Age: 53 Year
  Sex: Female

DRUGS (3)
  1. ENBREL [Suspect]
     Indication: PSORIATIC ARTHROPATHY
     Dosage: 50MG ONCE WEEKLY
     Route: 065
     Dates: start: 20131122
  2. PREDNISONE [Concomitant]
     Dosage: 03 MG, QD
     Route: 048
     Dates: start: 201305
  3. SULFASALAZINE [Concomitant]
     Dosage: 500MG 2 TABLETS DAILY
     Dates: start: 201305

REACTIONS (11)
  - Feeling abnormal [Not Recovered/Not Resolved]
  - Speech disorder [Not Recovered/Not Resolved]
  - Nervousness [Not Recovered/Not Resolved]
  - Alopecia [Not Recovered/Not Resolved]
  - Musculoskeletal stiffness [Not Recovered/Not Resolved]
  - Neck pain [Not Recovered/Not Resolved]
  - Pain in extremity [Not Recovered/Not Resolved]
  - Erythema [Recovered/Resolved]
  - Injection site bruising [Not Recovered/Not Resolved]
  - Injection site swelling [Not Recovered/Not Resolved]
  - Injection site erythema [Not Recovered/Not Resolved]
